FAERS Safety Report 10221207 (Version 1)
Quarter: 2014Q2

REPORT INFORMATION
  Report Type: Spontaneous
  Country: US (occurrence: US)
  Receive Date: 20140606
  Receipt Date: 20140606
  Transmission Date: 20141212
  Serious: No
  Sender: FDA-Public Use
  Company Number: US-GLAXOSMITHKLINE-A1064712A

PATIENT
  Age: 60 Year
  Sex: Female

DRUGS (16)
  1. BREO ELLIPTA [Suspect]
     Indication: CHRONIC OBSTRUCTIVE PULMONARY DISEASE
     Dosage: 1PUFF PER DAY
     Route: 055
     Dates: start: 201312
  2. DALIRESP [Concomitant]
  3. FLUOXETINE [Concomitant]
  4. FLUTICASONE SPRAY [Concomitant]
  5. PROAIR HFA [Concomitant]
  6. SPIRIVA [Concomitant]
  7. SUMATRIPTAN [Concomitant]
  8. TRAMADOL [Concomitant]
  9. TYLENOL EXTRA STRENGTH [Concomitant]
  10. NORTRIPTYLINE [Concomitant]
  11. TEMAZEPAM [Concomitant]
  12. DILTIAZEM [Concomitant]
  13. GUAIFENESIN [Concomitant]
  14. OXYGEN [Concomitant]
  15. MULTAQ [Concomitant]
  16. LORAZEPAM [Concomitant]

REACTIONS (2)
  - Dyspnoea [Not Recovered/Not Resolved]
  - Drug ineffective [Unknown]
